FAERS Safety Report 6115786-8 (Version None)
Quarter: 2009Q1

REPORT INFORMATION
  Report Type: 
  Country: None (occurrence: None)
  Receive Date: 20090311
  Receipt Date: 20090302
  Transmission Date: 20090719
  Serious: Yes (Other)
  Sender: FDA-Public Use
  Company Number: 2009S1000042

PATIENT
  Age: 55 Year
  Sex: Female

DRUGS (2)
  1. SORIATANE [Suspect]
     Indication: DRUG USE FOR UNKNOWN INDICATION
     Dosage: 20 MG, QOD, PO
     Route: 048
     Dates: start: 20070601
  2. UNSPECIFIED [Concomitant]

REACTIONS (2)
  - BLOOD PARATHYROID HORMONE DECREASED [None]
  - BLOOD PARATHYROID HORMONE INCREASED [None]
